FAERS Safety Report 8524626-9 (Version None)
Quarter: 2012Q3

REPORT INFORMATION
  Report Type: 
  Country: None (occurrence: None)
  Receive Date: 20120720
  Receipt Date: 20120706
  Transmission Date: 20120928
  Serious: Yes (Hospitalization)
  Sender: FDA-Public Use
  Company Number: JP-ROCHE-1068599

PATIENT
  Sex: Male

DRUGS (17)
  1. CALFINA [Concomitant]
     Indication: OSTEOPOROSIS
     Route: 048
  2. ACTEMRA [Suspect]
     Route: 041
     Dates: start: 20110111, end: 20110322
  3. PROCYLIN [Concomitant]
     Indication: RHEUMATOID ARTHRITIS
     Route: 048
     Dates: start: 20110111
  4. OMEPRAZOLE [Concomitant]
     Indication: PROPHYLAXIS
     Route: 048
     Dates: start: 20080101
  5. ACTEMRA [Suspect]
     Route: 041
     Dates: start: 20100927, end: 20101220
  6. METHOTREXATE SODIUM [Suspect]
     Indication: RHEUMATOID ARTHRITIS
     Route: 048
     Dates: start: 20060101, end: 20110411
  7. FOLIAMIN [Concomitant]
     Indication: RHEUMATOID ARTHRITIS
     Route: 048
     Dates: start: 20060101, end: 20110411
  8. IMURAN [Concomitant]
     Indication: RHEUMATOID ARTHRITIS
     Dosage: DOSAGE IS UNCERTAIN.
     Route: 048
     Dates: start: 20110617
  9. ACTEMRA [Suspect]
     Route: 041
     Dates: start: 20100122, end: 20100830
  10. ASPIRIN [Concomitant]
     Indication: RHEUMATOID ARTHRITIS
     Route: 048
     Dates: start: 20080101
  11. ACTEMRA [Suspect]
     Indication: RHEUMATOID ARTHRITIS
     Route: 041
     Dates: start: 20090917, end: 20091225
  12. BACTRIM [Concomitant]
     Indication: PROPHYLAXIS
     Route: 048
     Dates: start: 20080101
  13. DICLOFENAC SODIUM [Concomitant]
     Route: 048
  14. CYTOTEC [Concomitant]
     Indication: PROPHYLAXIS
     Route: 048
  15. PREDNISOLONE [Suspect]
     Indication: RHEUMATOID ARTHRITIS
     Route: 048
     Dates: end: 20100211
  16. PREDNISOLONE [Suspect]
     Route: 048
     Dates: start: 20100212, end: 20100325
  17. PREDNISOLONE [Suspect]
     Route: 048
     Dates: start: 20100326

REACTIONS (1)
  - SUBCUTANEOUS ABSCESS [None]
